FAERS Safety Report 9014000 (Version 1)
Quarter: 2013Q1

REPORT INFORMATION
  Report Type: Spontaneous
  Country: US (occurrence: None)
  Receive Date: 20130109
  Receipt Date: 20130109
  Transmission Date: 20140127
  Serious: No
  Sender: FDA-Public Use
  Company Number: None

PATIENT
  Age: 63 Year
  Sex: Female
  Weight: 79.5 kg

DRUGS (2)
  1. HYDROCODONE + ACETAMINOPHEN [Suspect]
     Indication: PROCEDURAL PAIN
     Dosage: 1 TABLET EVERY 4-6HRS ORALLY
     Route: 048
  2. HYDROCODONE + ACETAMINOPHEN [Suspect]
     Indication: TOOTH EXTRACTION
     Dosage: 1 TABLET EVERY 4-6HRS ORALLY
     Route: 048

REACTIONS (3)
  - Vomiting [None]
  - Malaise [None]
  - Fear [None]
